FAERS Safety Report 5735495-4 (Version None)
Quarter: 2008Q2

REPORT INFORMATION
  Report Type: 
  Country: None (occurrence: None)
  Receive Date: 20080512
  Receipt Date: 20080430
  Transmission Date: 20081010
  Serious: Yes (Other)
  Sender: FDA-Public Use
  Company Number: BE-PFIZER INC-2008039277

PATIENT
  Age: 55 Year
  Sex: Male
  Weight: 80 kg

DRUGS (4)
  1. CHANTIX [Suspect]
     Route: 048
     Dates: start: 20071110, end: 20080315
  2. AMLOR [Concomitant]
     Dosage: DAILY DOSE:10MG
     Route: 048
  3. ASAFLOW [Concomitant]
     Dosage: DAILY DOSE:160MG
     Route: 048
  4. CRESTOR [Concomitant]
     Dosage: DAILY DOSE:10MG
     Route: 048

REACTIONS (3)
  - ABDOMINAL PAIN [None]
  - AGITATION [None]
  - NERVOUSNESS [None]
